FAERS Safety Report 23068954 (Version 1)
Quarter: 2023Q4

REPORT INFORMATION
  Report Type: Spontaneous
  Country: CN (occurrence: CN)
  Receive Date: 20231016
  Receipt Date: 20231016
  Transmission Date: 20240110
  Serious: Yes (Other)
  Sender: FDA-Public Use
  Company Number: CN-BAYER-2023A142303

PATIENT
  Age: 60 Year
  Sex: Male
  Weight: 57.5 kg

DRUGS (1)
  1. PRIMOVIST [Suspect]
     Active Substance: GADOXETATE DISODIUM
     Indication: Magnetic resonance imaging abdominal
     Dosage: 10 ML, ONCE
     Route: 042
     Dates: start: 20230922, end: 20230922

REACTIONS (3)
  - Product residue present [Recovering/Resolving]
  - Muscle twitching [Recovering/Resolving]
  - Tremor [Recovering/Resolving]

NARRATIVE: CASE EVENT DATE: 20230922
